FAERS Safety Report 6640116-2 (Version None)
Quarter: 2010Q1

REPORT INFORMATION
  Report Type: 
  Country: None (occurrence: None)
  Receive Date: 20100318
  Receipt Date: 20100307
  Transmission Date: 20100710
  Serious: Yes (Hospitalization)
  Sender: FDA-Public Use
  Company Number: US-ELI_LILLY_AND_COMPANY-US201003003097

PATIENT
  Age: 70 Year
  Sex: Female

DRUGS (3)
  1. CYMBALTA [Suspect]
     Dosage: 60 MG, UNKNOWN
     Route: 048
     Dates: start: 20091220, end: 20100105
  2. CIPRO [Concomitant]
     Dosage: 500 MG, 2/D
  3. WARFARIN SODIUM [Concomitant]
     Dosage: 3 MG, UNK

REACTIONS (3)
  - BLOOD SODIUM DECREASED [None]
  - MULTI-ORGAN DISORDER [None]
  - URINARY TRACT INFECTION [None]
